FAERS Safety Report 22086236 (Version 1)
Quarter: 2023Q1

REPORT INFORMATION
  Report Type: Spontaneous
  Country: PE (occurrence: PE)
  Receive Date: 20230310
  Receipt Date: 20230310
  Transmission Date: 20230417
  Serious: Yes (Hospitalization, Other)
  Sender: FDA-Public Use
  Company Number: PE-BoehringerIngelheim-2023-BI-215004

PATIENT
  Age: 79 Year
  Sex: Male

DRUGS (2)
  1. MICARDIS [Suspect]
     Active Substance: TELMISARTAN
     Indication: Hypertension
     Dates: start: 2018, end: 2022
  2. MICARDIS [Suspect]
     Active Substance: TELMISARTAN
     Dosage: HALF OF 40 MG OD,  PRODUCT AND BATCH: 119686
     Dates: start: 202201

REACTIONS (9)
  - Sepsis [Unknown]
  - Gastric ulcer perforation [Unknown]
  - Gastric ulcer perforation [Unknown]
  - Haemorrhage [Recovered/Resolved]
  - Thrombosis [Recovered/Resolved]
  - Diarrhoea [Recovered/Resolved]
  - Drug ineffective [Unknown]
  - Product physical issue [Unknown]
  - Product physical issue [Unknown]

NARRATIVE: CASE EVENT DATE: 20190101
